FAERS Safety Report 9042905 (Version 1)
Quarter: 2013Q1

REPORT INFORMATION
  Report Type: Report from Study
  Country: US (occurrence: US)
  Receive Date: 20130129
  Receipt Date: 20130129
  Transmission Date: 20140127
  Serious: No
  Sender: FDA-Public Use
  Company Number: US-ABBOTT-12P-163-0910256-00

PATIENT
  Sex: Male
  Weight: 115.32 kg

DRUGS (6)
  1. HUMIRA 40 MG/0.8 ML PEN [Suspect]
     Indication: CROHN^S DISEASE
     Route: 058
     Dates: start: 20120210
  2. DIOVAN HCT [Concomitant]
     Indication: HYPERTENSION
  3. BONIVA [Concomitant]
     Indication: OSTEOPOROSIS
  4. VIIBRYD [Concomitant]
     Indication: DEPRESSION
  5. VICODIN [Concomitant]
     Indication: PAIN
  6. MULTIVITAMIN [Concomitant]
     Indication: PRODUCT USED FOR UNKNOWN INDICATION

REACTIONS (2)
  - Anorgasmia [Not Recovered/Not Resolved]
  - Ejaculation failure [Not Recovered/Not Resolved]
